FAERS Safety Report 13276797 (Version 1)
Quarter: 2017Q1

REPORT INFORMATION
  Report Type: Spontaneous
  Country: US (occurrence: US)
  Receive Date: 20170228
  Receipt Date: 20170228
  Transmission Date: 20170428
  Serious: No
  Sender: FDA-Public Use
  Company Number: US-BAYER-2017-037053

PATIENT
  Age: 11 Year
  Sex: Female
  Weight: 34 kg

DRUGS (3)
  1. LEXAPRO [Concomitant]
     Active Substance: ESCITALOPRAM OXALATE
  2. PREVACID [Concomitant]
     Active Substance: LANSOPRAZOLE
  3. MIRALAX [Suspect]
     Active Substance: POLYETHYLENE GLYCOL 3350
     Indication: GASTROINTESTINAL DISORDER
     Dosage: 1 DF, QD
     Route: 048
     Dates: start: 20150704, end: 20170218

REACTIONS (7)
  - Drug prescribing error [None]
  - Abnormal behaviour [Not Recovered/Not Resolved]
  - Depression [Not Recovered/Not Resolved]
  - Drug administered to patient of inappropriate age [None]
  - Crystal urine present [Not Recovered/Not Resolved]
  - Dysuria [Not Recovered/Not Resolved]
  - Back pain [Not Recovered/Not Resolved]

NARRATIVE: CASE EVENT DATE: 2015
